FAERS Safety Report 5053798-6 (Version None)
Quarter: 2006Q3

REPORT INFORMATION
  Report Type: 
  Country: None (occurrence: None)
  Receive Date: 20060712
  Receipt Date: 20060629
  Transmission Date: 20061208
  Serious: Yes (Disabling)
  Sender: FDA-Public Use
  Company Number: 2006069920

PATIENT
  Age: 87 Year
  Sex: Female
  Weight: 60.782 kg

DRUGS (10)
  1. LYRICA [Suspect]
     Indication: NEURALGIA
     Dosage: 75 MG, (75 MG, 1 IN 1 D),ORAL
     Route: 048
     Dates: start: 20060512, end: 20060602
  2. CAFFEINE/CODEINE PHOSPHATE/PARACETAMOL (CAFFEINE, CODEINE PHOSPHATE, P [Concomitant]
  3. TYLENOL W/ CODEINE [Concomitant]
  4. ZOPICLONE (ZOPICLONE) [Concomitant]
  5. SYNTHROID [Concomitant]
  6. TELMISARTAN (TELMISARTAN) [Concomitant]
  7. COMBIVENT [Concomitant]
  8. PANTOPRAZOLE SODIUM [Concomitant]
  9. INDAPAMIDE [Concomitant]
  10. SYMBICORT (BUDESONIDE, FORMOTEROL FUMARATE) [Concomitant]

REACTIONS (7)
  - ABNORMAL DREAMS [None]
  - ARTHROPATHY [None]
  - BALANCE DISORDER [None]
  - COUGH [None]
  - DROOLING [None]
  - DYSKINESIA [None]
  - SOMNOLENCE [None]
